FAERS Safety Report 8475526-4 (Version None)
Quarter: 2012Q2

REPORT INFORMATION
  Report Type: 
  Country: None (occurrence: None)
  Receive Date: 20120628
  Receipt Date: 20120620
  Transmission Date: 20120825
  Serious: Yes (Life-Threatening, Hospitalization)
  Sender: FDA-Public Use
  Company Number: US-JNJFOC-20120603631

PATIENT
  Sex: Female
  Weight: 94.8 kg

DRUGS (2)
  1. REMICADE [Suspect]
     Route: 042
     Dates: start: 20101014
  2. REMICADE [Suspect]
     Indication: PSORIASIS
     Route: 042
     Dates: start: 20080401

REACTIONS (2)
  - BREAST CANCER [None]
  - BREAST CANCER FEMALE [None]
